FAERS Safety Report 12340612 (Version 1)
Quarter: 2016Q2

REPORT INFORMATION
  Report Type: Spontaneous
  Country: US (occurrence: US)
  Receive Date: 20160506
  Receipt Date: 20160506
  Transmission Date: 20160815
  Serious: No
  Sender: FDA-Public Use
  Company Number: US-BAYER-2016-087567

PATIENT
  Age: 44 Year
  Sex: Female

DRUGS (2)
  1. MIDOL EXTENDED RELIEF [Suspect]
     Active Substance: NAPROXEN SODIUM
     Indication: DYSMENORRHOEA
     Dosage: 1 DF, PRN
     Dates: start: 2011, end: 2011
  2. ALEVE [Suspect]
     Active Substance: NAPROXEN SODIUM
     Indication: DYSMENORRHOEA
     Dosage: UNK, PRN
     Dates: start: 2011

REACTIONS (2)
  - Drug ineffective [None]
  - Incorrect dose administered [None]

NARRATIVE: CASE EVENT DATE: 2011
